FAERS Safety Report 13299786 (Version 2)
Quarter: 2017Q3

REPORT INFORMATION
  Report Type: Spontaneous
  Country: JP (occurrence: JP)
  Receive Date: 20170306
  Receipt Date: 20170710
  Transmission Date: 20171127
  Serious: Yes (Death, Hospitalization, Other)
  Sender: FDA-Public Use
  Company Number: JP-PFIZER INC-2016590284

PATIENT
  Age: 77 Year
  Sex: Male
  Weight: 50 kg

DRUGS (9)
  1. MAKYOKANSEKITO [Suspect]
     Active Substance: CALCIUM SULFATE\HERBALS
     Indication: NASOPHARYNGITIS
     Dosage: 7.5 G, 3X/DAY
     Route: 048
     Dates: start: 20161214, end: 20161217
  2. ZITHROMAC 250MG [Suspect]
     Active Substance: AZITHROMYCIN DIHYDRATE
     Indication: NASOPHARYNGITIS
     Dosage: 500 MG, 1X/DAY
     Route: 048
     Dates: start: 20161214, end: 20161216
  3. BLOPRESS [Concomitant]
     Active Substance: CANDESARTAN CILEXETIL
     Indication: HYPERTENSION
     Dosage: 4 MG, 1X/DAY
     Route: 048
  4. NORVASC [Concomitant]
     Active Substance: AMLODIPINE BESYLATE
     Indication: HYPERTENSION
     Dosage: 5 MG, 1X/DAY
     Route: 048
  5. LYRICA [Concomitant]
     Active Substance: PREGABALIN
     Dosage: 75 MG, 1X/DAY
     Route: 048
  6. MELOXICAM. [Concomitant]
     Active Substance: MELOXICAM
     Dosage: 10 MG, 1X/DAY
     Route: 048
  7. TOKAKUJOKITO [Concomitant]
     Dosage: 5 G, ALTERNATE DAY
     Route: 048
  8. ALLOPURINOL. [Concomitant]
     Active Substance: ALLOPURINOL
     Indication: HYPERURICAEMIA
     Dosage: 100 MG, 1X/DAY
     Route: 048
  9. OMEPRAZOLE. [Concomitant]
     Active Substance: OMEPRAZOLE
     Dosage: 20 MG, 1X/DAY
     Route: 048

REACTIONS (5)
  - Diabetes mellitus inadequate control [Not Recovered/Not Resolved]
  - Pneumonia staphylococcal [Fatal]
  - Eosinophilic pneumonia [Fatal]
  - Blood pressure inadequately controlled [Not Recovered/Not Resolved]
  - Interstitial lung disease [Fatal]

NARRATIVE: CASE EVENT DATE: 20161217
